FAERS Safety Report 4798088-1 (Version None)
Quarter: 2005Q4

REPORT INFORMATION
  Report Type: 
  Country: None (occurrence: None)
  Receive Date: 20051006
  Receipt Date: 20051006
  Transmission Date: 20060501
  Serious: Yes (Hospitalization)
  Sender: FDA-Public Use
  Company Number: None

PATIENT
  Age: 76 Year
  Sex: Female

DRUGS (6)
  1. TRIAMTERENE AND HYDROCHLOROTHIAZIDE [Suspect]
     Indication: HYPERTENSION
     Dosage: 50/75
     Dates: start: 20041026, end: 20041102
  2. METOPROLOL [Concomitant]
  3. LANSOPRAZOLE [Concomitant]
  4. GLIPIZIDE [Concomitant]
  5. AMLODIPINE [Concomitant]
  6. EPOGEN [Concomitant]

REACTIONS (4)
  - CARDIAC ARREST [None]
  - DIARRHOEA [None]
  - DIZZINESS [None]
  - RENAL FAILURE ACUTE [None]
